FAERS Safety Report 9847220 (Version 1)
Quarter: 2014Q1

REPORT INFORMATION
  Report Type: Spontaneous
  Country: US (occurrence: US)
  Receive Date: 20140127
  Receipt Date: 20140127
  Transmission Date: 20141002
  Serious: Yes (Other)
  Sender: FDA-Public Use
  Company Number: US-PFIZER INC-2014024700

PATIENT
  Age: 65 Year
  Sex: Female
  Weight: 79.37 kg

DRUGS (4)
  1. LYRICA [Suspect]
     Indication: FIBROMYALGIA
     Dosage: 200 MG, 3X/DAY
  2. LYRICA [Suspect]
     Dosage: 100 MG, 2X/DAY
  3. NEXIUM [Concomitant]
     Indication: GASTROOESOPHAGEAL REFLUX DISEASE
     Dosage: 40 MG, 2X/DAY
  4. CRESTOR [Concomitant]
     Indication: BLOOD CHOLESTEROL INCREASED
     Dosage: 10 MG, DAILY

REACTIONS (6)
  - Stomach mass [Unknown]
  - Vaginal haemorrhage [Unknown]
  - Vulvovaginal pain [Unknown]
  - Tooth erosion [Unknown]
  - Pain in extremity [Unknown]
  - Hypoaesthesia [Unknown]
